FAERS Safety Report 9410246 (Version 1)
Quarter: 2013Q3

REPORT INFORMATION
  Report Type: Spontaneous
  Country: FR (occurrence: FR)
  Receive Date: 20130719
  Receipt Date: 20130719
  Transmission Date: 20140515
  Serious: Yes (Hospitalization)
  Sender: FDA-Public Use
  Company Number: FR-GILEAD-2013-0079086

PATIENT
  Age: 47 Year
  Sex: Male

DRUGS (13)
  1. VIREAD [Suspect]
     Indication: HIV INFECTION
     Dosage: 245 MG, UNK
     Route: 048
     Dates: start: 20130224, end: 20130227
  2. PIPERACILLINE [Suspect]
     Dosage: UNK
     Dates: start: 20130216, end: 20130227
  3. ISENTRESS [Suspect]
     Dosage: 400 MG, UNK
     Route: 048
     Dates: start: 20130224, end: 20130227
  4. KALETRA [Suspect]
     Dosage: UNK
     Route: 048
     Dates: start: 20130224, end: 20130227
  5. CEFTRIAXONE [Suspect]
     Indication: PNEUMONIA PNEUMOCOCCAL
     Dosage: UNK
     Dates: start: 20130212
  6. SPIRAMYCIN [Suspect]
     Indication: PNEUMONIA PNEUMOCOCCAL
  7. TAZOCILLINE [Suspect]
     Dosage: UNK
     Dates: start: 20130214, end: 20130216
  8. AMIKACINE MYLAN [Suspect]
     Dosage: UNK
     Dates: start: 20130214, end: 20130216
  9. NOZINAN /00038601/ [Suspect]
     Dosage: UNK
     Dates: start: 20130214, end: 20130227
  10. BACTRIM [Suspect]
     Dosage: UNK
     Dates: start: 20130214, end: 20130215
  11. EPIVIR [Suspect]
     Dosage: UNK
     Dates: start: 20130224, end: 20130227
  12. ADRENALINE                         /00003901/ [Concomitant]
     Indication: CARDIAC FAILURE
  13. NORADRENALINE                      /00127501/ [Concomitant]
     Indication: CARDIAC FAILURE

REACTIONS (1)
  - Stevens-Johnson syndrome [Recovered/Resolved]
